FAERS Safety Report 11595370 (Version 2)
Quarter: 2019Q3

REPORT INFORMATION
  Report Type: Report from Study
  Country: US (occurrence: US)
  Receive Date: 20151006
  Receipt Date: 20190809
  Transmission Date: 20191004
  Serious: Yes (Other)
  Sender: FDA-Public Use
  Company Number: US-ROCHE-1640402

PATIENT

DRUGS (2)
  1. BEVACIZUMAB. [Suspect]
     Active Substance: BEVACIZUMAB
     Indication: GLIOBLASTOMA
     Route: 065
  2. VORINOSTAT [Suspect]
     Active Substance: VORINOSTAT
     Indication: GLIOBLASTOMA
     Route: 065

REACTIONS (6)
  - Hypertension [Unknown]
  - Decreased appetite [Unknown]
  - Infection [Unknown]
  - Deep vein thrombosis [Unknown]
  - Neurological symptom [Unknown]
  - Wound dehiscence [Unknown]
